FAERS Safety Report 8476790-8 (Version None)
Quarter: 2012Q2

REPORT INFORMATION
  Report Type: 
  Country: None (occurrence: None)
  Receive Date: 20120628
  Receipt Date: 20120622
  Transmission Date: 20120825
  Serious: Yes (Hospitalization)
  Sender: FDA-Public Use
  Company Number: US-ROCHE-1074618

PATIENT
  Weight: 106.3 kg

DRUGS (16)
  1. VEMURAFENIB [Suspect]
     Dates: start: 20120620
  2. METRONIDAZOLE [Suspect]
     Indication: PRODUCT USED FOR UNKNOWN INDICATION
  3. OMEPRAZOLE [Suspect]
     Indication: PRODUCT USED FOR UNKNOWN INDICATION
     Dates: start: 20120426
  4. CEFTRIAXONE SODIUM [Suspect]
     Indication: PRODUCT USED FOR UNKNOWN INDICATION
  5. PARACETAMOL [Suspect]
     Dates: start: 20120527, end: 20120527
  6. SULFAMETHOXAZOLE AND TRIMETHOPRIM [Suspect]
     Indication: PRODUCT USED FOR UNKNOWN INDICATION
  7. DOXYCYCLINE HYCLATE [Suspect]
     Indication: PRODUCT USED FOR UNKNOWN INDICATION
  8. PARACETAMOL [Suspect]
     Dates: start: 20120518, end: 20120518
  9. PARACETAMOL [Suspect]
     Dates: start: 20120523, end: 20120526
  10. MORPHINE [Concomitant]
     Dates: start: 20120601, end: 20120602
  11. PARACETAMOL [Suspect]
     Dates: start: 20120522, end: 20120522
  12. VEMURAFENIB [Suspect]
     Indication: METASTATIC MALIGNANT MELANOMA
     Dosage: LAST DOSE PRIOR TO SAE: 27/MAY/2012
     Route: 048
     Dates: start: 20120416, end: 20120527
  13. PARACETAMOL [Suspect]
     Dates: start: 20120519, end: 20120521
  14. PARACETAMOL [Suspect]
     Indication: PRODUCT USED FOR UNKNOWN INDICATION
     Route: 065
     Dates: start: 20120516, end: 20120517
  15. DIPHENHYDRAMINE HYDROCHLORIDE [Suspect]
     Indication: PRODUCT USED FOR UNKNOWN INDICATION
     Dates: start: 20120426
  16. PARACETAMOL [Suspect]
     Dates: start: 20120531, end: 20120601

REACTIONS (4)
  - JAUNDICE [None]
  - PYREXIA [None]
  - LIVER FUNCTION TEST ABNORMAL [None]
  - CHOLESTASIS [None]
